FAERS Safety Report 8510691-1 (Version None)
Quarter: 2012Q3

REPORT INFORMATION
  Report Type: 
  Country: None (occurrence: None)
  Receive Date: 20120709
  Receipt Date: 20120709
  Transmission Date: 20120928
  Serious: No
  Sender: FDA-Public Use
  Company Number: None

PATIENT
  Age: 18 Year

DRUGS (2)
  1. LISINOPRIL [Suspect]
     Dosage: 10 MG
  2. LEXAPRO [Suspect]
     Dosage: 10 MG

REACTIONS (1)
  - INTERCEPTED DRUG DISPENSING ERROR [None]
